FAERS Safety Report 26025193 (Version 2)
Quarter: 2025Q4

REPORT INFORMATION
  Report Type: Spontaneous
  Country: US (occurrence: US)
  Receive Date: 20251111
  Receipt Date: 20251215
  Transmission Date: 20260118
  Serious: No
  Sender: TOLMAR
  Company Number: US-Tolmar-TLM-2025-07919

PATIENT

DRUGS (3)
  1. ELIGARD [Suspect]
     Active Substance: LEUPROLIDE ACETATE
     Indication: Prostate cancer
     Dosage: SERIAL NUMBER 6242046865072, ?NDC NUMBER 62935-227-10, ?GTIN 00362935227106?EXPIRATION DATE: FEB-202
  2. ELIGARD [Suspect]
     Active Substance: LEUPROLIDE ACETATE
     Dosage: REPLACEMENT DOSE
  3. DEVICE [Suspect]
     Active Substance: DEVICE
     Indication: Prostate cancer
     Dosage: SERIAL NUMBER 6242046865072, ?NDC NUMBER 62935-227-10, ?GTIN 00362935227106?EXPIRATION DATE: FEB-202

REACTIONS (2)
  - Intercepted product preparation error [Unknown]
  - Device leakage [Unknown]
